FAERS Safety Report 6679375-9 (Version None)
Quarter: 2010Q2

REPORT INFORMATION
  Report Type: 
  Country: None (occurrence: None)
  Receive Date: 20100413
  Receipt Date: 20100402
  Transmission Date: 20101027
  Serious: Yes (Hospitalization)
  Sender: FDA-Public Use
  Company Number: JP-ROCHE-693934

PATIENT
  Age: 62 Year
  Sex: Female

DRUGS (1)
  1. XELODA [Suspect]
     Indication: COLON CANCER
     Dosage: DISCONTINUED
     Route: 048
     Dates: start: 20100302, end: 20100315

REACTIONS (3)
  - DIARRHOEA [None]
  - MUCOUS MEMBRANE DISORDER [None]
  - NEUTROPENIA [None]
